FAERS Safety Report 26098169 (Version 1)
Quarter: 2025Q4

REPORT INFORMATION
  Report Type: Spontaneous
  Country: EU (occurrence: EU)
  Receive Date: 20251127
  Receipt Date: 20251127
  Transmission Date: 20260118
  Serious: Yes (Hospitalization)
  Sender: ABBVIE
  Company Number: EU-ABBVIE-6536447

PATIENT
  Age: 33 Year
  Sex: Female

DRUGS (2)
  1. ADALIMUMAB [Suspect]
     Active Substance: ADALIMUMAB
     Indication: Hidradenitis
     Route: 058
  2. RIFAMPIN [Concomitant]
     Active Substance: RIFAMPIN
     Indication: Antibiotic prophylaxis
     Dosage: 2 X 300 MG
     Route: 065

REACTIONS (1)
  - Vogt-Koyanagi-Harada disease [Recovered/Resolved]
